FAERS Safety Report 8842624 (Version 1)
Quarter: 2012Q4

REPORT INFORMATION
  Report Type: 
  Country: US (occurrence: US)
  Receive Date: 20121016
  Receipt Date: 20121016
  Transmission Date: 20130627
  Serious: No
  Sender: FDA-Public Use
  Company Number: US-ASTRAZENECA-2012SE75784

PATIENT
  Age: 49 Year
  Sex: Female
  Weight: 94.8 kg

DRUGS (5)
  1. SEROQUEL XR [Suspect]
     Indication: PANIC DISORDER
     Route: 048
     Dates: start: 2010, end: 20120927
  2. KLONOPIN [Concomitant]
  3. TRAZADONE [Concomitant]
  4. ZOLOFT [Concomitant]
  5. VITAMIN D [Concomitant]

REACTIONS (9)
  - Myalgia [Unknown]
  - Insomnia [Unknown]
  - Anxiety [Unknown]
  - Nausea [Unknown]
  - Intervertebral disc degeneration [Unknown]
  - Musculoskeletal pain [Unknown]
  - Neck pain [Unknown]
  - Drug withdrawal syndrome [Unknown]
  - Drug dose omission [Unknown]
